FAERS Safety Report 7170084-9 (Version None)
Quarter: 2010Q4

REPORT INFORMATION
  Report Type: 
  Country: None (occurrence: None)
  Receive Date: 20101214
  Receipt Date: 20101214
  Transmission Date: 20110411
  Serious: Yes (Other)
  Sender: FDA-Public Use
  Company Number: None

PATIENT
  Sex: Male
  Weight: 81.6475 kg

DRUGS (2)
  1. ZOCOR [Suspect]
     Indication: BLOOD CHOLESTEROL INCREASED
     Dosage: 20 MG DAILY BY MOUTH  ABOUT 2006 - 2009
     Route: 048
     Dates: start: 20060101, end: 20090101
  2. CRESTOR [Suspect]
     Dosage: 5 MG DAILY BY MOUTH  EARLY TO MID 2010
     Route: 048
     Dates: start: 20100101

REACTIONS (1)
  - BREAST TENDERNESS [None]
